FAERS Safety Report 16859265 (Version 1)
Quarter: 2019Q3

REPORT INFORMATION
  Report Type: Spontaneous
  Country: CN (occurrence: CN)
  Receive Date: 20190926
  Receipt Date: 20190926
  Transmission Date: 20191005
  Serious: Yes (Other)
  Sender: FDA-Public Use
  Company Number: CN-ASTRAZENECA-2019SE93289

PATIENT
  Age: 25488 Day
  Sex: Female
  Weight: 54 kg

DRUGS (12)
  1. MEDROL [Suspect]
     Active Substance: METHYLPREDNISOLONE
     Indication: INFLAMMATION
     Route: 041
     Dates: start: 20190424, end: 20190505
  2. MEDROL [Suspect]
     Active Substance: METHYLPREDNISOLONE
     Indication: INFLAMMATION
     Dosage: 20 MG IN THE MORNING AND 16 MG IN THE EVENING
     Route: 048
     Dates: start: 20190506
  3. MEDROL [Suspect]
     Active Substance: METHYLPREDNISOLONE
     Indication: INFECTION
     Dosage: 20 MG IN THE MORNING AND 16 MG IN THE EVENING
     Route: 048
     Dates: start: 20190506
  4. SYMBICORT [Suspect]
     Active Substance: BUDESONIDE\FORMOTEROL FUMARATE DIHYDRATE
     Indication: ASTHMA
     Dosage: 320UG, 1 INHALATION, TWO TIMES A DAY
     Route: 055
     Dates: start: 20190412, end: 20190506
  5. MEDROL [Suspect]
     Active Substance: METHYLPREDNISOLONE
     Indication: INFLAMMATION
     Dosage: REDUCE ITS DOSE BY 4 MG PER WEEK
     Route: 048
  6. MEDROL [Suspect]
     Active Substance: METHYLPREDNISOLONE
     Indication: INFECTION
     Route: 048
  7. HEPARIN [Concomitant]
     Active Substance: HEPARIN SODIUM
     Indication: COAGULOPATHY
  8. MEDROL [Suspect]
     Active Substance: METHYLPREDNISOLONE
     Indication: INFECTION
     Dosage: REDUCE ITS DOSE BY 4 MG PER WEEK
     Route: 048
  9. MEDROL [Suspect]
     Active Substance: METHYLPREDNISOLONE
     Indication: INFECTION
     Route: 041
     Dates: start: 20190424, end: 20190505
  10. MEDROL [Suspect]
     Active Substance: METHYLPREDNISOLONE
     Indication: INFLAMMATION
     Route: 048
  11. FRUSEMIDE [Concomitant]
     Active Substance: FUROSEMIDE
     Indication: POLYURIA
  12. SPIRONOLACTONE. [Concomitant]
     Active Substance: SPIRONOLACTONE
     Indication: COAGULOPATHY

REACTIONS (5)
  - Leukoplakia oral [Recovering/Resolving]
  - Deep vein thrombosis [Unknown]
  - Pulmonary hypertension [Unknown]
  - Interstitial lung disease [Unknown]
  - Blood pressure decreased [Unknown]

NARRATIVE: CASE EVENT DATE: 20190505
